FAERS Safety Report 9281679 (Version 12)
Quarter: 2015Q3

REPORT INFORMATION
  Report Type: Report from Study
  Country: US (occurrence: US)
  Receive Date: 20130509
  Receipt Date: 20150807
  Transmission Date: 20151125
  Serious: Yes (Hospitalization, Other)
  Sender: FDA-Public Use
  Company Number: US-SANOFI-AVENTIS-2013SA035566

PATIENT
  Age: 42 Year
  Sex: Female
  Weight: 82.5 kg

DRUGS (16)
  1. AUBAGIO [Suspect]
     Active Substance: TERIFLUNOMIDE
     Indication: MULTIPLE SCLEROSIS
     Dosage: THERAPY START DATE - 25-DEC-2012
     Route: 048
     Dates: start: 201212, end: 201401
  2. EFFEXOR [Concomitant]
     Active Substance: VENLAFAXINE HYDROCHLORIDE
     Indication: DEPRESSION
     Dosage: 1 - AM
     Route: 065
  3. ALPRAZOLAM. [Concomitant]
     Active Substance: ALPRAZOLAM
     Indication: ANXIETY
     Dosage: 3 X DAY PRN
     Route: 065
  4. CARISOPRODOL. [Concomitant]
     Active Substance: CARISOPRODOL
     Indication: MUSCLE SPASTICITY
     Dosage: 1 - 4 X DAY
     Route: 065
  5. TIZANIDINE. [Concomitant]
     Active Substance: TIZANIDINE
     Indication: MUSCLE SPASTICITY
     Dosage: 5 - AT NIGHT
     Route: 065
  6. AUBAGIO [Suspect]
     Active Substance: TERIFLUNOMIDE
     Indication: MULTIPLE SCLEROSIS
     Dosage: THERAPY START DATE - 25-DEC-2012
     Route: 048
     Dates: start: 20140122
  7. VITAMIN D [Concomitant]
     Active Substance: CHOLECALCIFEROL
     Dosage: 3000 TO 5000 MG AS NEEDED
  8. AUBAGIO [Suspect]
     Active Substance: TERIFLUNOMIDE
     Indication: MULTIPLE SCLEROSIS
     Route: 048
     Dates: start: 20121128
  9. DESOGESTREL/ETHINYLESTRADIOL [Concomitant]
     Indication: CONTRACEPTION
     Route: 048
  10. AMITRIPTYLINE [Concomitant]
     Active Substance: AMITRIPTYLINE
     Indication: NEUROPATHY PERIPHERAL
     Dosage: 1-2 AT NIGHT: DAILY DOSE
  11. GABAPENTIN. [Concomitant]
     Active Substance: GABAPENTIN
     Indication: NEUROPATHY PERIPHERAL
  12. ZOLPIDEM TARTRATE. [Concomitant]
     Active Substance: ZOLPIDEM TARTRATE
     Indication: INSOMNIA
     Dosage: 1 - AT BED
     Route: 065
  13. PANTHENOL/RETINOL/THIAMINE HYDROCHLORIDE/ASCORBIC ACID/ERGOCALCIFEROL/FOLIC ACID/RIBOFLAVIN/NICOTINA [Concomitant]
     Route: 048
  14. GABAPENTIN. [Concomitant]
     Active Substance: GABAPENTIN
     Indication: PAIN
  15. AMPYRA [Concomitant]
     Active Substance: DALFAMPRIDINE
     Indication: BALANCE DISORDER
     Dosage: 2- 1AM 1PM
     Route: 065
     Dates: start: 201303
  16. SIMVASTATIN. [Concomitant]
     Active Substance: SIMVASTATIN
     Indication: HYPERCHOLESTEROLAEMIA
     Dosage: 1 PER DAY AT BED TIME
     Route: 065

REACTIONS (36)
  - Gait disturbance [Unknown]
  - Feeling abnormal [Unknown]
  - Hypoaesthesia [Recovered/Resolved]
  - Vision blurred [Unknown]
  - Multiple sclerosis relapse [Unknown]
  - Rhinorrhoea [Unknown]
  - Abdominal discomfort [Not Recovered/Not Resolved]
  - Dizziness [Unknown]
  - Arthropathy [Unknown]
  - Malaise [Unknown]
  - Pain in extremity [Unknown]
  - Diarrhoea [Not Recovered/Not Resolved]
  - Paraesthesia [Not Recovered/Not Resolved]
  - Loss of consciousness [Not Recovered/Not Resolved]
  - Hot flush [Not Recovered/Not Resolved]
  - Back injury [Unknown]
  - Fatigue [Unknown]
  - Hypoaesthesia [Not Recovered/Not Resolved]
  - Dysphagia [Unknown]
  - Migraine [Unknown]
  - Sleep disorder [Unknown]
  - Anger [Unknown]
  - Frustration [Unknown]
  - Anxiety [Unknown]
  - Pain in jaw [Unknown]
  - Musculoskeletal discomfort [Not Recovered/Not Resolved]
  - Cough [Unknown]
  - Alanine aminotransferase increased [Unknown]
  - Gastroenteritis viral [Recovered/Resolved]
  - Pain [Unknown]
  - Appendicectomy [Unknown]
  - Nausea [Not Recovered/Not Resolved]
  - Hepatic enzyme increased [Unknown]
  - Sneezing [Unknown]
  - Vomiting [Recovered/Resolved]
  - Tinea pedis [Unknown]

NARRATIVE: CASE EVENT DATE: 2006
